FAERS Safety Report 4493983-5 (Version None)
Quarter: 2004Q4

REPORT INFORMATION
  Report Type: 
  Country: None (occurrence: None)
  Receive Date: 20041103
  Receipt Date: 20041103
  Transmission Date: 20050328
  Serious: No
  Sender: FDA-Public Use
  Company Number: None

PATIENT
  Sex: Male
  Weight: 74.8435 kg

DRUGS (1)
  1. AORTIC VALVE HOMOGRAFT TISSUE [Suspect]

REACTIONS (2)
  - CARDIAC VALVE REPLACEMENT COMPLICATION [None]
  - TRANSPLANT FAILURE [None]
